FAERS Safety Report 8447359-6 (Version None)
Quarter: 2012Q2

REPORT INFORMATION
  Report Type: 
  Country: None (occurrence: None)
  Receive Date: 20120619
  Receipt Date: 20120607
  Transmission Date: 20120825
  Serious: Yes (Life-Threatening, Other)
  Sender: FDA-Public Use
  Company Number: JP-GE HEALTHCARE MEDICAL DIAGNOSTICS-OMPQ-NO-1201S-0142

PATIENT
  Sex: Female

DRUGS (13)
  1. FOIPAN [Concomitant]
  2. YODEL S [Concomitant]
  3. DAIKENTYUTO [Concomitant]
  4. RISEDRONATE SODIUM [Concomitant]
  5. VITAMIN B12 [Concomitant]
  6. IOPAMIDOL-370 [Suspect]
     Indication: PRODUCT USED FOR UNKNOWN INDICATION
     Dosage: UNKNOWN
     Route: 022
     Dates: start: 20120119, end: 20120119
  7. PRAVASTATIN [Concomitant]
  8. RABEPRAZOLE SODIUM [Concomitant]
  9. CARVEDILOL [Concomitant]
  10. LENDORMIN D [Concomitant]
  11. OMNIPAQUE 140 [Suspect]
     Indication: PRODUCT USED FOR UNKNOWN INDICATION
     Route: 022
     Dates: start: 20120119, end: 20120119
  12. SEVEN E [Concomitant]
  13. CANDESARTAN CILEXETIL [Concomitant]

REACTIONS (9)
  - DYSPNOEA [None]
  - BLOOD PRESSURE IMMEASURABLE [None]
  - ANAPHYLACTOID SHOCK [None]
  - ERYTHEMA [None]
  - PRURITUS [None]
  - DISCOMFORT [None]
  - ALTERED STATE OF CONSCIOUSNESS [None]
  - BRADYCARDIA [None]
  - ARTERIOSPASM CORONARY [None]
